FAERS Safety Report 5863531-3 (Version None)
Quarter: 2008Q3

REPORT INFORMATION
  Report Type: 
  Country: None (occurrence: None)
  Receive Date: 20080828
  Receipt Date: 20080818
  Transmission Date: 20090109
  Serious: Yes (Other)
  Sender: FDA-Public Use
  Company Number: GB-ELI_LILLY_AND_COMPANY-GB200808003719

PATIENT
  Age: 8 Year
  Sex: Female
  Weight: 23 kg

DRUGS (2)
  1. STRATTERA [Suspect]
     Indication: ATTENTION DEFICIT/HYPERACTIVITY DISORDER
     Dosage: 25 MG, UNKNOWN
     Route: 048
     Dates: start: 20080717
  2. SALBUTAMOL [Concomitant]
     Indication: ASTHMA
     Dosage: UNK, UNKNOWN
     Route: 048

REACTIONS (2)
  - CONDITION AGGRAVATED [None]
  - TIC [None]
